FAERS Safety Report 25084375 (Version 1)
Quarter: 2025Q1

REPORT INFORMATION
  Report Type: Spontaneous
  Country: US (occurrence: None)
  Receive Date: 20250314
  Receipt Date: 20250314
  Transmission Date: 20250409
  Serious: Yes (Disabling)
  Sender: FDA-CTU
  Company Number: None

PATIENT
  Age: 76 Year
  Sex: Female
  Weight: 73.94 kg

DRUGS (9)
  1. LEQVIO [Suspect]
     Active Substance: INCLISIRAN SODIUM
     Indication: Blood cholesterol increased
     Route: 058
     Dates: start: 202407, end: 202408
  2. METOPROLOL [Concomitant]
     Active Substance: METOPROLOL
  3. ISOSORBIDE [Concomitant]
     Active Substance: ISOSORBIDE
  4. NM-6603 [Concomitant]
     Active Substance: NM-6603
  5. FOLIC ACID [Concomitant]
     Active Substance: FOLIC ACID
  6. MESALAMINE [Concomitant]
     Active Substance: MESALAMINE
  7. PREDNISONE [Concomitant]
     Active Substance: PREDNISONE
  8. NEXIUM [Concomitant]
     Active Substance: ESOMEPRAZOLE MAGNESIUM
  9. ASPIRIN [Concomitant]
     Active Substance: ASPIRIN

REACTIONS (6)
  - Myalgia [None]
  - Stomatitis [None]
  - Nausea [None]
  - Peripheral swelling [None]
  - Pain in extremity [None]
  - Inflammation [None]

NARRATIVE: CASE EVENT DATE: 20240701
